FAERS Safety Report 11486579 (Version 1)
Quarter: 2015Q3

REPORT INFORMATION
  Report Type: Spontaneous
  Country: US (occurrence: US)
  Receive Date: 20150910
  Receipt Date: 20150910
  Transmission Date: 20151125
  Serious: No
  Sender: FDA-Public Use
  Company Number: US-PFIZER INC-2015270780

PATIENT
  Age: 9 Year
  Sex: Female

DRUGS (2)
  1. ZARONTIN [Suspect]
     Active Substance: ETHOSUXIMIDE
     Indication: EPILEPSY
  2. ZARONTIN [Suspect]
     Active Substance: ETHOSUXIMIDE
     Indication: SEIZURE
     Dosage: 250 MG, DAILY
     Dates: start: 201508

REACTIONS (3)
  - Sleep disorder [Unknown]
  - Erythema [Recovering/Resolving]
  - Rash pruritic [Recovering/Resolving]
